FAERS Safety Report 10525597 (Version 3)
Quarter: 2014Q4

REPORT INFORMATION
  Report Type: Report from Study
  Country: AT (occurrence: AT)
  Receive Date: 20141017
  Receipt Date: 20141201
  Transmission Date: 20150528
  Serious: Yes (Life-Threatening, Hospitalization)
  Sender: FDA-Public Use
  Company Number: PHHO2014AT013661

PATIENT
  Age: 68 Year
  Sex: Male
  Weight: 84 kg

DRUGS (8)
  1. CANCOR [Concomitant]
     Indication: CARDIAC FAILURE
     Dosage: 5 MG/DAY
     Route: 065
  2. FUROSEMIDE. [Suspect]
     Active Substance: FUROSEMIDE
     Indication: CARDIAC FAILURE
     Dosage: 120 MG, UNK
     Route: 048
     Dates: start: 20141006
  3. BLINDED NO TREATMENT RECEIVED [Suspect]
     Active Substance: UNSPECIFIED INGREDIENT
     Indication: CARDIAC FAILURE ACUTE
     Dosage: CODE NOT BROKEN
     Route: 042
     Dates: start: 20141006, end: 20141008
  4. BLINDED RLX030 [Suspect]
     Active Substance: SERELAXIN
     Indication: CARDIAC FAILURE ACUTE
     Dosage: CODE NOT BROKEN
     Route: 042
     Dates: start: 20141006, end: 20141008
  5. CANDESARTAN [Concomitant]
     Active Substance: CANDESARTAN
     Indication: CARDIAC FAILURE
     Dosage: 8 MG/DAY
     Route: 065
  6. TORASEMID [Concomitant]
     Active Substance: TORSEMIDE
     Indication: CARDIAC FAILURE
     Dosage: 40 MG/DAY
     Route: 065
  7. INSPRA [Concomitant]
     Active Substance: EPLERENONE
  8. PLACEBO [Suspect]
     Active Substance: UNSPECIFIED INGREDIENT
     Indication: CARDIAC FAILURE ACUTE
     Dosage: CODE NOT BROKEN
     Route: 042
     Dates: start: 20141006, end: 20141008

REACTIONS (2)
  - Ventricular tachycardia [Recovered/Resolved]
  - Cardiac failure [Recovered/Resolved]

NARRATIVE: CASE EVENT DATE: 20141008
